FAERS Safety Report 9051065 (Version 3)
Quarter: 2013Q1

REPORT INFORMATION
  Report Type: Spontaneous
  Country: US (occurrence: US)
  Receive Date: 20130206
  Receipt Date: 20130306
  Transmission Date: 20140127
  Serious: Yes (Hospitalization)
  Sender: FDA-Public Use
  Company Number: US-ELI_LILLY_AND_COMPANY-US201301009879

PATIENT
  Age: 86 Year
  Sex: Female
  Weight: 69.9 kg

DRUGS (19)
  1. FORTEO [Suspect]
     Dosage: UNK
     Dates: start: 20121217
  2. ACETAMINOPHEN [Concomitant]
     Dosage: 500 MG, QID
  3. AMIODARONE HCL [Concomitant]
     Dosage: 200 MG, QD
  4. ATORVASTATIN CALCIUM [Concomitant]
     Dosage: 80 MG, QD
  5. BIMATOPROST [Concomitant]
     Dosage: UNK, QD
  6. CALCIUM +D3 [Concomitant]
     Dosage: UNK, QD
  7. FENTANYL [Concomitant]
  8. FUROSEMIDE [Concomitant]
     Dosage: 40 MG, QD
  9. GABAPENTIN [Concomitant]
     Dosage: 200 MG, TID
  10. HYDROMORPHONE HCL [Concomitant]
     Dosage: 2 MG, PRN
  11. LEVOTHYROXINE SODIUM [Concomitant]
     Dosage: 125 UG, QD
  12. METOPROLOL TARTRATE [Concomitant]
     Dosage: 75 MG, QD
  13. NORTRIPTYLINE HCL [Concomitant]
     Dosage: 50 MG, QD
  14. POTASSIUM CHLORIDE [Concomitant]
     Dosage: 20 MEQ, QD
  15. DOCUSATE SODIUM [Concomitant]
     Dosage: UNK, PRN
  16. SERTRALINE HCL [Concomitant]
     Dosage: 50 MG, QD
  17. SOLIFENACIN SUCCINATE [Concomitant]
     Dosage: 5 MG, QD
  18. TEMAZEPAM [Concomitant]
     Dosage: 15 MG, PRN
  19. WARFARIN SODIUM [Concomitant]
     Dosage: 1 MG, QD

REACTIONS (3)
  - Urinary tract infection [Recovered/Resolved]
  - Sinusitis [Recovered/Resolved]
  - Malaise [Unknown]
